FAERS Safety Report 9145671 (Version 1)
Quarter: 2013Q1

REPORT INFORMATION
  Report Type: Spontaneous
  Country: US (occurrence: None)
  Receive Date: 20130227
  Receipt Date: 20130227
  Transmission Date: 20140127
  Serious: No
  Sender: FDA-Public Use
  Company Number: None

PATIENT
  Age: 55 Year
  Sex: Male
  Weight: 90 kg

DRUGS (3)
  1. QUETIAPINE [Suspect]
     Indication: SCHIZOAFFECTIVE DISORDER DEPRESSIVE TYPE
     Dosage: QUETIAPINE 100MG  I PO BID BY MOUTH/ORAL
     Route: 048
     Dates: start: 20120501, end: 20120531
  2. LISINOPRIL [Concomitant]
  3. SIMVASTATIN [Concomitant]

REACTIONS (8)
  - Somnolence [None]
  - Nausea [None]
  - Disturbance in attention [None]
  - Nightmare [None]
  - Agitation [None]
  - Frustration [None]
  - Sedation [None]
  - Product substitution issue [None]
